FAERS Safety Report 6895762-8 (Version None)
Quarter: 2010Q3

REPORT INFORMATION
  Report Type: 
  Country: None (occurrence: None)
  Receive Date: 20100802
  Receipt Date: 20100723
  Transmission Date: 20110219
  Serious: Yes (Other)
  Sender: FDA-Public Use
  Company Number: US-PFIZER INC-2010093448

PATIENT
  Sex: Female
  Weight: 61 kg

DRUGS (2)
  1. XALATAN [Suspect]
     Indication: GLAUCOMA
     Dosage: UNK
     Route: 047
  2. LIPITOR [Concomitant]
     Indication: BLOOD CHOLESTEROL INCREASED
     Dosage: 10 MG, 1X/DAY
     Route: 048

REACTIONS (1)
  - INTRAOCULAR PRESSURE INCREASED [None]
